FAERS Safety Report 9406974 (Version 1)
Quarter: 2013Q3

REPORT INFORMATION
  Report Type: Spontaneous
  Country: KR (occurrence: None)
  Receive Date: 20130716
  Receipt Date: 20130716
  Transmission Date: 20140515
  Serious: Yes (Other)
  Sender: FDA-Public Use
  Company Number: SYM-2013-06076

PATIENT
  Sex: Female

DRUGS (3)
  1. FLUOROURACIL [Suspect]
     Indication: OVARIAN EPITHELIAL CANCER
     Route: 040
  2. OXALIPLATIN (OXALIPLATIN) (OXALIPLATIN) [Suspect]
     Indication: OVARIAN EPITHELIAL CANCER
  3. LEUCOVORIN [Suspect]
     Indication: OVARIAN EPITHELIAL CANCER
     Dosage: 200MG/M2

REACTIONS (1)
  - Anaemia [None]
